FAERS Safety Report 5454579-1 (Version None)
Quarter: 2007Q3

REPORT INFORMATION
  Report Type: 
  Country: None (occurrence: None)
  Receive Date: 20070917
  Receipt Date: 20060921
  Transmission Date: 20080115
  Serious: No
  Sender: FDA-Public Use
  Company Number: US-ASTRAZENECA-2006UW18479

PATIENT
  Age: 57 Year
  Sex: Male
  Weight: 68 kg

DRUGS (4)
  1. SEROQUEL [Suspect]
     Indication: BIPOLAR DISORDER
     Route: 048
     Dates: start: 19970101
  2. NARDIL [Concomitant]
  3. ATIVAN [Concomitant]
  4. LITHIUM [Concomitant]

REACTIONS (1)
  - ANORGASMIA [None]
